FAERS Safety Report 19278115 (Version 1)
Quarter: 2021Q2

REPORT INFORMATION
  Report Type: Spontaneous
  Country: US (occurrence: US)
  Receive Date: 20210519
  Receipt Date: 20210519
  Transmission Date: 20210717
  Serious: Yes (Other)
  Sender: FDA-Public Use
  Company Number: None

PATIENT
  Age: 11 Year

DRUGS (1)
  1. LIDOCAINE NUMBING CREAM [Suspect]
     Active Substance: LIDOCAINE
     Indication: PAIN
     Dosage: ?          QUANTITY:4 OUNCE(S);?
     Route: 061
     Dates: start: 20201001, end: 20201030

REACTIONS (3)
  - Failure of child resistant product closure [None]
  - Product label confusion [None]
  - Rash [None]

NARRATIVE: CASE EVENT DATE: 20201023
